FAERS Safety Report 9236985 (Version 1)
Quarter: 2013Q2

REPORT INFORMATION
  Report Type: Spontaneous
  Country: GB (occurrence: None)
  Receive Date: 20130415
  Receipt Date: 20130415
  Transmission Date: 20140414
  Serious: Yes (Disabling)
  Sender: FDA-Public Use
  Company Number: AUR-APL-2013-03085

PATIENT
  Age: 77 Year
  Sex: Male
  Weight: 76.2 kg

DRUGS (9)
  1. METFORMIN (METFORMIN) [Suspect]
     Indication: PRODUCT USED FOR UNKNOWN INDICATION
     Dosage: UNKNOWN
  2. METFORMIN (METFORMIN) [Suspect]
     Indication: PRODUCT USED FOR UNKNOWN INDICATION
  3. ASPRIN [Concomitant]
  4. BENDROFLUMETHIAZIDE (BENDROGLUMETHIAZIDE)? [Concomitant]
  5. DILZEM SR (DILTIAZEM) [Concomitant]
  6. ENALAPRIL [Concomitant]
  7. OMEPRAZOLE (OMEPRAZOLE) [Concomitant]
  8. QUININE (QUININE) [Concomitant]
  9. SIMVASTATIN (SIMVASTATIN) [Concomitant]

REACTIONS (3)
  - Vertigo [None]
  - Constipation [None]
  - Eating disorder [None]
